FAERS Safety Report 6821755-2 (Version None)
Quarter: 2010Q3

REPORT INFORMATION
  Report Type: 
  Country: None (occurrence: None)
  Receive Date: 20100702
  Receipt Date: 20100624
  Transmission Date: 20110219
  Serious: Yes (Hospitalization)
  Sender: FDA-Public Use
  Company Number: 009557

PATIENT
  Age: 61 Year
  Sex: Male

DRUGS (9)
  1. PLETAL [Suspect]
     Indication: ARTERIOSCLEROSIS OBLITERANS
     Dosage: 50 MG, BID, ORAL
     Route: 048
     Dates: start: 20090124, end: 20090602
  2. CRESTOR [Concomitant]
  3. CIBENOL (CIBENZOLINE SUCCINATE) [Concomitant]
  4. DEPAS (ETIZOLAM) [Concomitant]
  5. SELBEX (TEPRENONE) [Concomitant]
  6. FAMOTIDINE [Concomitant]
  7. GASMOTIN (MOSAPRIDE CITRATE) [Concomitant]
  8. NAUZELIN (DOMPERIDONE) [Concomitant]
  9. GOREL-SAN (HERBAL EXTRACTS NOS) [Concomitant]

REACTIONS (1)
  - GASTRIC ULCER HAEMORRHAGE [None]
